FAERS Safety Report 6857149-3 (Version None)
Quarter: 2010Q3

REPORT INFORMATION
  Report Type: 
  Country: None (occurrence: None)
  Receive Date: 20100719
  Receipt Date: 20100712
  Transmission Date: 20110219
  Serious: Yes (Hospitalization)
  Sender: FDA-Public Use
  Company Number: Z0004357A

PATIENT
  Age: 72 Year
  Sex: Female
  Weight: 53.1 kg

DRUGS (6)
  1. SUNITINIB MALATE [Suspect]
     Indication: RENAL CELL CARCINOMA
     Dosage: 50MG PER DAY
     Route: 048
     Dates: start: 20100105
  2. SODIUM CHLORIDE [Suspect]
     Indication: DEHYDRATION
     Dosage: 1000L CONTINUOUS
     Route: 042
     Dates: start: 20100514, end: 20100515
  3. ONDANSETRON [Suspect]
     Indication: NAUSEA
     Dosage: 4MG THREE TIMES PER DAY
     Route: 042
     Dates: start: 20100514, end: 20100515
  4. GUAIFENESIN + CODEINE [Suspect]
     Indication: COUGH
     Dosage: 10ML FOUR TIMES PER DAY
     Route: 048
     Dates: start: 20100514, end: 20100515
  5. BENZONATATE [Suspect]
     Indication: COUGH
     Dosage: 100MG THREE TIMES PER DAY
     Route: 048
     Dates: start: 20100514, end: 20100515
  6. LEVOFLOXACIN [Concomitant]
     Indication: INFECTION
     Dosage: 500MG CONTINUOUS
     Route: 042
     Dates: start: 20100514, end: 20100515

REACTIONS (8)
  - BLOOD CHLORIDE DECREASED [None]
  - BLOOD UREA DECREASED [None]
  - DEHYDRATION [None]
  - HYPONATRAEMIA [None]
  - NAUSEA [None]
  - PLATELET COUNT DECREASED [None]
  - PROTEIN TOTAL DECREASED [None]
  - VOMITING [None]
